FAERS Safety Report 6046160-0 (Version None)
Quarter: 2009Q1

REPORT INFORMATION
  Report Type: 
  Country: None (occurrence: None)
  Receive Date: 20090116
  Receipt Date: 20090116
  Transmission Date: 20090719
  Serious: Yes (Other)
  Sender: FDA-Public Use
  Company Number: None

PATIENT
  Age: 40 Year
  Sex: Male
  Weight: 79.8331 kg

DRUGS (1)
  1. HALDOL [Suspect]
     Indication: TOOTH EXTRACTION
     Dosage: 6 PILLS 1 TIME PO 1 TIME
     Route: 048

REACTIONS (5)
  - ABNORMAL BEHAVIOUR [None]
  - AGGRESSION [None]
  - AGITATION [None]
  - PAIN [None]
  - PHYSICAL ABUSE [None]
